FAERS Safety Report 7394734-7 (Version None)
Quarter: 2011Q2

REPORT INFORMATION
  Report Type: 
  Country: None (occurrence: None)
  Receive Date: 20110405
  Receipt Date: 20110330
  Transmission Date: 20111010
  Serious: Yes (Other)
  Sender: FDA-Public Use
  Company Number: US-JNJFOC-20110302656

PATIENT
  Sex: Female
  Weight: 61.24 kg

DRUGS (1)
  1. LEVAQUIN [Suspect]
     Indication: PNEUMONIA
     Route: 048

REACTIONS (7)
  - ADVERSE DRUG REACTION [None]
  - NAUSEA [None]
  - ASTHENIA [None]
  - DYSPEPSIA [None]
  - OCULAR ICTERUS [None]
  - VOMITING [None]
  - ERUCTATION [None]
